FAERS Safety Report 24530307 (Version 3)
Quarter: 2024Q4

REPORT INFORMATION
  Report Type: Spontaneous
  Country: AU (occurrence: AU)
  Receive Date: 20241021
  Receipt Date: 20241112
  Transmission Date: 20250115
  Serious: Yes (Hospitalization, Other)
  Sender: CSL BEHRING
  Company Number: AU-BEH-2024182031

PATIENT
  Age: 80 Year
  Sex: Female
  Weight: 35.2 kg

DRUGS (14)
  1. HUMAN IMMUNOGLOBULIN G [Suspect]
     Active Substance: HUMAN IMMUNOGLOBULIN G
     Indication: Hypogammaglobulinaemia
     Dosage: UNK
     Route: 042
     Dates: start: 202409
  2. HUMAN IMMUNOGLOBULIN G [Suspect]
     Active Substance: HUMAN IMMUNOGLOBULIN G
     Dosage: 15 G (STRENGTH: 10G/100ML, 5G/50ML)
     Route: 042
     Dates: start: 20241008, end: 20241008
  3. VALACYCLOVIR [Concomitant]
     Active Substance: VALACYCLOVIR HYDROCHLORIDE
  4. BACTRIM [Concomitant]
     Active Substance: SULFAMETHOXAZOLE\TRIMETHOPRIM
  5. DROXIDOPA [Concomitant]
     Active Substance: DROXIDOPA
  6. FUROSEMIDE [Concomitant]
     Active Substance: FUROSEMIDE
  7. MAGNESIUM [Concomitant]
     Active Substance: MAGNESIUM
  8. Midodrine scp [Concomitant]
  9. ACETAMINOPHEN [Concomitant]
     Active Substance: ACETAMINOPHEN
  10. PREDNISOLONE [Concomitant]
     Active Substance: PREDNISOLONE
  11. PREGABALIN [Concomitant]
     Active Substance: PREGABALIN
  12. RABEPRAZOLE [Concomitant]
     Active Substance: RABEPRAZOLE
  13. THIAMINE [Concomitant]
     Active Substance: THIAMINE
  14. LORATADINE [Concomitant]
     Active Substance: LORATADINE
     Indication: Premedication

REACTIONS (10)
  - Infusion related reaction [Recovered/Resolved]
  - Headache [Recovered/Resolved]
  - Dyspnoea [Recovered/Resolved]
  - Chills [Recovered/Resolved]
  - Rales [Recovered/Resolved]
  - Pneumothorax [Unknown]
  - Infusion related reaction [Unknown]
  - Chills [Unknown]
  - Inflammatory marker increased [Unknown]
  - Lung consolidation [Unknown]

NARRATIVE: CASE EVENT DATE: 20240901
